FAERS Safety Report 9419641 (Version 1)
Quarter: 2013Q3

REPORT INFORMATION
  Report Type: Spontaneous
  Country: US (occurrence: None)
  Receive Date: 20130724
  Receipt Date: 20130724
  Transmission Date: 20140515
  Serious: Yes (Life-Threatening)
  Sender: FDA-Public Use
  Company Number: None

PATIENT
  Age: 50 Year
  Sex: Female
  Weight: 77.11 kg

DRUGS (1)
  1. AMOXICILLIN [Suspect]
     Indication: EAR INFECTION
     Dosage: TOOK 1 PILL AT 10:00AM
     Dates: start: 20130622

REACTIONS (4)
  - Diarrhoea [None]
  - Dizziness [None]
  - Headache [None]
  - Pyrexia [None]
